FAERS Safety Report 10031002 (Version 15)
Quarter: 2015Q1

REPORT INFORMATION
  Report Type: Spontaneous
  Country: CA (occurrence: CA)
  Receive Date: 20140324
  Receipt Date: 20150120
  Transmission Date: 20150720
  Serious: Yes (Other)
  Sender: FDA-Public Use
  Company Number: CA-ROCHE-1367886

PATIENT
  Age: 32 Year
  Sex: Female

DRUGS (8)
  1. XOLAIR [Suspect]
     Active Substance: OMALIZUMAB
     Route: 058
     Dates: start: 20140929
  2. XOLAIR [Suspect]
     Active Substance: OMALIZUMAB
     Route: 058
     Dates: start: 20140818
  3. XOLAIR [Suspect]
     Active Substance: OMALIZUMAB
     Route: 058
     Dates: start: 20140331
  4. XOLAIR [Suspect]
     Active Substance: OMALIZUMAB
     Route: 058
     Dates: start: 20140902
  5. SALBUTAMOL [Concomitant]
     Active Substance: ALBUTEROL
  6. XOLAIR [Suspect]
     Active Substance: OMALIZUMAB
     Indication: ASTHMA
     Route: 058
     Dates: start: 20140203
  7. XOLAIR [Suspect]
     Active Substance: OMALIZUMAB
     Route: 058
     Dates: start: 20141222
  8. FLOVENT [Concomitant]
     Active Substance: FLUTICASONE PROPIONATE

REACTIONS (19)
  - Dysphonia [Unknown]
  - Asthma [Not Recovered/Not Resolved]
  - Kidney infection [Unknown]
  - Sinus congestion [Not Recovered/Not Resolved]
  - Rhonchi [Unknown]
  - Laryngitis [Unknown]
  - Cough [Unknown]
  - Productive cough [Recovering/Resolving]
  - Respiratory tract congestion [Unknown]
  - Increased upper airway secretion [Unknown]
  - Dyspnoea [Recovering/Resolving]
  - Lower respiratory tract infection [Unknown]
  - Seasonal allergy [Unknown]
  - Respiratory disorder [Unknown]
  - Feeling abnormal [Unknown]
  - Injection site pain [Unknown]
  - Wheezing [Not Recovered/Not Resolved]
  - Nasal congestion [Unknown]
  - Chest discomfort [Unknown]

NARRATIVE: CASE EVENT DATE: 20140219
